FAERS Safety Report 23651391 (Version 1)
Quarter: 2024Q1

REPORT INFORMATION
  Report Type: Spontaneous
  Country: CN (occurrence: CN)
  Receive Date: 20240320
  Receipt Date: 20240320
  Transmission Date: 20240410
  Serious: Yes (Hospitalization, Other)
  Sender: FDA-Public Use
  Company Number: CN-MACLEODS PHARMACEUTICALS US LTD-MAC2024046354

PATIENT

DRUGS (8)
  1. LIDOCAINE 5% [Suspect]
     Active Substance: LIDOCAINE
     Indication: Local anaesthesia
     Dosage: 5 MILLILITER, SINGLE (INJECTION (PFT) LOCALLY)
     Route: 065
  2. DEXMEDETOMIDINE [Suspect]
     Active Substance: DEXMEDETOMIDINE
     Indication: Anaesthesia
     Dosage: 4 MICROGRAM, SINGLE
     Route: 065
  3. DEXMEDETOMIDINE [Suspect]
     Active Substance: DEXMEDETOMIDINE
     Indication: Sedative therapy
  4. OXYGEN [Suspect]
     Active Substance: OXYGEN
     Indication: Oxygen therapy
     Dosage: 3 LITER (PER MINUTE WITH NASAL CANNULA)
     Route: 045
  5. SUFENTANIL [Suspect]
     Active Substance: SUFENTANIL
     Indication: Anaesthesia
     Dosage: 5 MICROGRAM, SINGLE
     Route: 065
  6. SUFENTANIL [Suspect]
     Active Substance: SUFENTANIL
     Indication: Sedative therapy
  7. MIDAZOLAM [Suspect]
     Active Substance: MIDAZOLAM
     Indication: Anaesthesia
     Dosage: 1 MILLIGRAM, SINGLE
     Route: 065
  8. MIDAZOLAM [Suspect]
     Active Substance: MIDAZOLAM
     Indication: Sedative therapy

REACTIONS (3)
  - Atelectasis [Recovering/Resolving]
  - Pleural effusion [Recovering/Resolving]
  - Hypoxia [Recovering/Resolving]
